FAERS Safety Report 4449937-8 (Version None)
Quarter: 2004Q3

REPORT INFORMATION
  Report Type: 
  Country: None (occurrence: None)
  Receive Date: 20040915
  Receipt Date: 20040826
  Transmission Date: 20050211
  Serious: Yes (Other)
  Sender: FDA-Public Use
  Company Number: AU-GLAXOSMITHKLINE-B0344111A

PATIENT
  Age: 26 Year
  Sex: Male

DRUGS (2)
  1. ZYBAN [Suspect]
     Dosage: 150MG TWICE PER DAY
     Route: 048
     Dates: start: 20040823, end: 20040827
  2. VALPROIC ACID [Concomitant]
     Indication: EPILEPSY
     Dosage: 500MG TWICE PER DAY

REACTIONS (4)
  - HALLUCINATION [None]
  - HALLUCINATION, AUDITORY [None]
  - HALLUCINATION, VISUAL [None]
  - SENSATION OF PRESSURE [None]
